FAERS Safety Report 9370737 (Version 1)
Quarter: 2013Q2

REPORT INFORMATION
  Report Type: Spontaneous
  Country: US (occurrence: US)
  Receive Date: 20130626
  Receipt Date: 20130626
  Transmission Date: 20140414
  Serious: Yes (Other)
  Sender: FDA-Public Use
  Company Number: US-ABBOTT-13P-163-1108793-00

PATIENT
  Age: 50 Year
  Sex: Female

DRUGS (2)
  1. LUPRON DEPOT [Suspect]
     Indication: UTERINE LEIOMYOMA
     Dates: start: 20130522
  2. NUVARING [Suspect]
     Indication: PRODUCT USED FOR UNKNOWN INDICATION
     Route: 067
     Dates: start: 201301, end: 201305

REACTIONS (4)
  - Cerebrovascular accident [Unknown]
  - Pain [Unknown]
  - Hypoaesthesia [Unknown]
  - Mobility decreased [Unknown]
